FAERS Safety Report 11765314 (Version 1)
Quarter: 2015Q4

REPORT INFORMATION
  Report Type: Spontaneous
  Country: US (occurrence: US)
  Receive Date: 20151120
  Receipt Date: 20151120
  Transmission Date: 20160304
  Serious: No
  Sender: FDA-Public Use
  Company Number: US-ELI_LILLY_AND_COMPANY-US201402005299

PATIENT
  Age: 49 Year
  Sex: Female

DRUGS (4)
  1. IBUPROFEN. [Concomitant]
     Active Substance: IBUPROFEN
     Indication: PYREXIA
  2. PRAZOLAM [Concomitant]
     Indication: ANXIETY
  3. FORTEO [Suspect]
     Active Substance: TERIPARATIDE
     Indication: OSTEOPOROSIS
     Dosage: UNK, QD
     Route: 065
     Dates: start: 201402
  4. PRAZOLAM [Concomitant]
     Indication: POOR QUALITY SLEEP

REACTIONS (3)
  - Ear pain [Unknown]
  - Nasal congestion [Unknown]
  - Mood altered [Unknown]

NARRATIVE: CASE EVENT DATE: 201402
